FAERS Safety Report 24295139 (Version 2)
Quarter: 2025Q2

REPORT INFORMATION
  Report Type: Spontaneous
  Country: PT (occurrence: PT)
  Receive Date: 20240907
  Receipt Date: 20250401
  Transmission Date: 20250716
  Serious: Yes (Hospitalization, Other)
  Sender: AUROBINDO
  Company Number: PT-ETHYPHARM-2024002320

PATIENT
  Age: 57 Year
  Sex: Male

DRUGS (1)
  1. VALPROIC ACID [Suspect]
     Active Substance: VALPROIC ACID
     Indication: Epilepsy
     Route: 065

REACTIONS (4)
  - Pancreatitis acute [Recovered/Resolved]
  - Shock [Recovered/Resolved]
  - Renal disorder [Recovered/Resolved]
  - Cardiovascular disorder [Recovered/Resolved]
